FAERS Safety Report 9792533 (Version 2)
Quarter: 2014Q1

REPORT INFORMATION
  Report Type: Spontaneous
  Country: IT (occurrence: IT)
  Receive Date: 20140102
  Receipt Date: 20140102
  Transmission Date: 20141002
  Serious: Yes (Other)
  Sender: FDA-Public Use
  Company Number: IT-TEVA-453359ISR

PATIENT
  Age: 44 Year
  Sex: Male
  Weight: 84 kg

DRUGS (2)
  1. CISPLATINO TEVA ITALIA [Suspect]
     Indication: LUNG NEOPLASM MALIGNANT
     Dosage: 160 MILLIGRAM DAILY; CONCENTRATE FOR SOLUTION FOR INFUSION
     Route: 041
     Dates: start: 20131202, end: 20131202
  2. ETOPOSIDE TEVA [Suspect]
     Indication: LUNG NEOPLASM MALIGNANT
     Dosage: 200 MILLIGRAM DAILY; CONCENTRATE FOR SOLUTION FOR INFUSION
     Route: 042
     Dates: start: 20131202, end: 20131204

REACTIONS (4)
  - Bronchospasm [Unknown]
  - Dyspnoea [Unknown]
  - Asthenia [Unknown]
  - Nausea [Unknown]
